FAERS Safety Report 9852446 (Version 2)
Quarter: 2014Q2

REPORT INFORMATION
  Report Type: Spontaneous
  Country: PL (occurrence: PL)
  Receive Date: 20140129
  Receipt Date: 20140619
  Transmission Date: 20141212
  Serious: Yes (Life-Threatening, Hospitalization)
  Sender: FDA-Public Use
  Company Number: PL-SA-2014SA008015

PATIENT
  Age: 57 Year
  Sex: Female

DRUGS (25)
  1. CLEXANE [Suspect]
     Indication: RHEUMATOID ARTHRITIS
     Route: 058
     Dates: start: 20131215, end: 20131223
  2. CLEXANE [Suspect]
     Indication: RHEUMATOID ARTHRITIS
     Route: 065
     Dates: start: 20131214
  3. CLEXANE [Suspect]
     Indication: RHEUMATOID ARTHRITIS
     Route: 058
     Dates: start: 20131224
  4. TOCILIZUMAB [Suspect]
     Indication: RHEUMATOID ARTHRITIS
     Dosage: EVERY 4 WEEKS
     Route: 042
     Dates: start: 20130522
  5. DEFLEGMIN [Concomitant]
     Indication: SINUSITIS
     Route: 048
  6. METYPRED [Concomitant]
     Indication: RHEUMATOID ARTHRITIS
     Route: 048
     Dates: start: 20101119
  7. METHOTREXATE [Concomitant]
     Indication: RHEUMATOID ARTHRITIS
     Route: 048
     Dates: start: 20101119
  8. ACIDUM FOLICUM [Concomitant]
     Route: 048
     Dates: start: 20101119
  9. MOVALIS [Concomitant]
     Indication: RHEUMATOID ARTHRITIS
     Route: 048
     Dates: start: 20101119, end: 20130506
  10. DICLOFENAC SODIUM [Concomitant]
     Indication: RHEUMATOID ARTHRITIS
     Route: 048
     Dates: start: 20130507
  11. OMEPRAZOLE [Concomitant]
     Route: 048
     Dates: start: 20130506
  12. ROSUVASTATIN [Concomitant]
     Indication: HYPERLIPIDAEMIA
     Route: 048
     Dates: start: 2012
  13. LACIPIL [Concomitant]
     Indication: HYPERTENSION
     Route: 048
     Dates: start: 201209
  14. HYDROCHLOROTHIAZIDE/TELMISARTAN [Concomitant]
     Indication: HYPERTENSION
     Route: 048
     Dates: start: 201209
  15. NEBILET [Concomitant]
     Route: 048
     Dates: start: 201209, end: 20131106
  16. NEBILET [Concomitant]
     Route: 048
     Dates: start: 20131107
  17. EUTHYROX [Concomitant]
     Indication: AUTOIMMUNE THYROIDITIS
     Route: 048
     Dates: start: 200102
  18. KLACID [Concomitant]
     Indication: UPPER RESPIRATORY TRACT INFECTION
     Route: 048
     Dates: start: 20131010, end: 20131016
  19. ZINNAT [Concomitant]
     Indication: SINUSITIS
     Route: 048
     Dates: start: 20131119, end: 20131128
  20. AMOKSIKLAV [Concomitant]
     Route: 042
     Dates: start: 20131213, end: 20131223
  21. METRONIDAZOLE [Concomitant]
     Route: 042
     Dates: start: 20131214, end: 20131223
  22. KETONAL [Concomitant]
     Dates: start: 20131214, end: 20131223
  23. METOCLOPRAMIDE [Concomitant]
     Dates: start: 20131214, end: 20131223
  24. METOCLOPRAMIDE [Concomitant]
  25. PYRALGIN [Concomitant]
     Dates: start: 20131214, end: 20131223

REACTIONS (1)
  - Diverticular perforation [Recovered/Resolved with Sequelae]
